FAERS Safety Report 6985750 (Version 3)
Quarter: 2014Q2

REPORT INFORMATION
  Report Type: Spontaneous
  Country: US (occurrence: US)
  Receive Date: 20090504
  Receipt Date: 20140410
  Transmission Date: 20141212
  Serious: Yes (Other)
  Sender: FDA-Public Use
  Company Number: US-ALEXION-A200900142

PATIENT
  Age: 28 Year
  Sex: Male

DRUGS (1)
  1. SOLIRIS [Suspect]
     Indication: PAROXYSMAL NOCTURNAL HAEMOGLOBINURIA
     Dosage: UNK
     Route: 042
     Dates: start: 20081125

REACTIONS (8)
  - Haemoglobin decreased [Unknown]
  - Chromaturia [Unknown]
  - Blood lactate dehydrogenase increased [Unknown]
  - Rhinorrhoea [Unknown]
  - Productive cough [Unknown]
  - Nasopharyngitis [Unknown]
  - Haemoglobinuria [Unknown]
  - Aspartate aminotransferase increased [Unknown]
